FAERS Safety Report 5395150-X (Version None)
Quarter: 2007Q3

REPORT INFORMATION
  Report Type: 
  Country: None (occurrence: None)
  Receive Date: 20070724
  Receipt Date: 20070718
  Transmission Date: 20080115
  Serious: Yes (Hospitalization, Other)
  Sender: FDA-Public Use
  Company Number: AU-AVENTIS-200716617GDDC

PATIENT
  Age: 65 Year
  Sex: Female

DRUGS (5)
  1. LANTUS [Suspect]
     Route: 058
     Dates: start: 20070226
  2. AUTOPEN INSULIN INJECTION PEN [Suspect]
  3. ASTRIX [Concomitant]
  4. COVERSYL                           /00790701/ [Concomitant]
  5. LIPITOR [Concomitant]

REACTIONS (1)
  - WOUND INFECTION [None]
